FAERS Safety Report 9434595 (Version 1)
Quarter: 2013Q3

REPORT INFORMATION
  Report Type: Spontaneous
  Country: US (occurrence: US)
  Receive Date: 20130801
  Receipt Date: 20130801
  Transmission Date: 20140515
  Serious: No
  Sender: FDA-Public Use
  Company Number: US-PFIZER INC-2013223084

PATIENT
  Age: 59 Year
  Sex: Female
  Weight: 109 kg

DRUGS (4)
  1. LYRICA [Suspect]
     Indication: NEURALGIA
     Dosage: 50 MG, 2X/DAY
     Route: 048
     Dates: start: 20130728
  2. XANAX [Suspect]
     Indication: ANXIETY
     Dosage: 1 MG, 2X/DAY
     Route: 048
  3. PRISTIQ [Concomitant]
     Indication: DEPRESSION
     Dosage: UNK
  4. COUMADIN [Concomitant]
     Dosage: UNK

REACTIONS (2)
  - Anxiety [Not Recovered/Not Resolved]
  - Headache [Not Recovered/Not Resolved]
